FAERS Safety Report 4490848-X (Version None)
Quarter: 2004Q4

REPORT INFORMATION
  Report Type: 
  Country: None (occurrence: None)
  Receive Date: 20041027
  Receipt Date: 20041019
  Transmission Date: 20050328
  Serious: No
  Sender: FDA-Public Use
  Company Number: 04H-087-0278040-00

PATIENT
  Age: 75 Year
  Sex: Female

DRUGS (4)
  1. HEPARIN SODIUM [Suspect]
     Indication: PULMONARY EMBOLISM
     Dosage: 14000 UNIT, CONTINUOUS INFUSION, INTRAVENOUS
     Route: 042
  2. COUMADIN [Concomitant]
  3. RECOMBINANT HUMAN ATRIAL NATRIURETIC PEPTIDE [Concomitant]
  4. FUROSEMIDE [Concomitant]

REACTIONS (8)
  - DISEASE PROGRESSION [None]
  - DISSEMINATED INTRAVASCULAR COAGULATION [None]
  - DRY GANGRENE [None]
  - HEPARIN-INDUCED THROMBOCYTOPENIA [None]
  - POLYCYTHAEMIA VERA [None]
  - RENAL FAILURE ACUTE [None]
  - TRANSIENT ISCHAEMIC ATTACK [None]
  - WHITE CLOT SYNDROME [None]
